FAERS Safety Report 13927271 (Version 1)
Quarter: 2017Q3

REPORT INFORMATION
  Report Type: Spontaneous
  Country: US (occurrence: US)
  Receive Date: 20170831
  Receipt Date: 20170831
  Transmission Date: 20171127
  Serious: Yes (Death)
  Sender: FDA-Public Use
  Company Number: None

PATIENT
  Sex: Female
  Weight: 70.65 kg

DRUGS (10)
  1. INVOKANA [Suspect]
     Active Substance: CANAGLIFLOZIN
     Indication: TYPE 2 DIABETES MELLITUS
     Dosage: ?          QUANTITY:1 TABLET(S);?
     Route: 048
     Dates: start: 20160413, end: 20170720
  2. DULOXETINE. [Concomitant]
     Active Substance: DULOXETINE
  3. ATENOLOL. [Concomitant]
     Active Substance: ATENOLOL
  4. CRESTOR [Concomitant]
     Active Substance: ROSUVASTATIN CALCIUM
  5. INSULIN GLARGINE-LANTUS [Concomitant]
  6. ATIVAN [Concomitant]
     Active Substance: LORAZEPAM
  7. LATUDA [Concomitant]
     Active Substance: LURASIDONE HYDROCHLORIDE
  8. INSULIN LISPRO-HUMALOG [Concomitant]
  9. LOSARTAN. [Concomitant]
     Active Substance: LOSARTAN
  10. SEROQUEL [Concomitant]
     Active Substance: QUETIAPINE FUMARATE

REACTIONS (10)
  - Pollakiuria [None]
  - Pain in extremity [None]
  - Dyspnoea [None]
  - Thrombosis [None]
  - Pancreatic carcinoma [None]
  - Dehydration [None]
  - Pulmonary thrombosis [None]
  - Fatigue [None]
  - Asthenia [None]
  - Weight decreased [None]

NARRATIVE: CASE EVENT DATE: 20170501
